FAERS Safety Report 23689616 (Version 2)
Quarter: 2024Q2

REPORT INFORMATION
  Report Type: Spontaneous
  Country: US (occurrence: US)
  Receive Date: 20240331
  Receipt Date: 20240410
  Transmission Date: 20240715
  Serious: Yes (Hospitalization)
  Sender: FDA-Public Use
  Company Number: US-TEVA-VS-3173982

PATIENT
  Age: 66 Year
  Sex: Male

DRUGS (2)
  1. FLUCONAZOLE [Suspect]
     Active Substance: FLUCONAZOLE
     Indication: Coccidioidomycosis
     Route: 065
  2. MINERAL OIL [Suspect]
     Active Substance: MINERAL OIL
     Indication: Constipation
     Dosage: DRINKING MINERAL-OIL
     Route: 048

REACTIONS (3)
  - Pneumonia lipoid [Recovered/Resolved]
  - Drug ineffective [Unknown]
  - Pulmonary cavitation [Recovered/Resolved]
